FAERS Safety Report 14664459 (Version 1)
Quarter: 2018Q1

REPORT INFORMATION
  Report Type: Spontaneous
  Country: US (occurrence: US)
  Receive Date: 20180319
  Receipt Date: 20180319
  Transmission Date: 20180509
  Serious: Yes (Hospitalization)
  Sender: FDA-Public Use
  Company Number: None

PATIENT
  Age: 73 Year
  Sex: Female

DRUGS (15)
  1. BENAZEPRIL [Concomitant]
     Active Substance: BENAZEPRIL HYDROCHLORIDE
  2. CONTOUR [Concomitant]
  3. ALLOPURINOL. [Concomitant]
     Active Substance: ALLOPURINOL
  4. METOPROLOL TARTRATE. [Concomitant]
     Active Substance: METOPROLOL TARTRATE
  5. BENZEPRIL [Concomitant]
  6. CARTIA XT [Concomitant]
     Active Substance: DILTIAZEM HYDROCHLORIDE
  7. GABAPENTIN. [Concomitant]
     Active Substance: GABAPENTIN
  8. FUROSEMIDE. [Concomitant]
     Active Substance: FUROSEMIDE
  9. IBRANCE [Suspect]
     Active Substance: PALBOCICLIB
     Indication: NEOPLASM MALIGNANT
     Route: 048
     Dates: start: 20161116
  10. WARFARIN [Concomitant]
     Active Substance: WARFARIN
  11. MYRBETRIQ [Concomitant]
     Active Substance: MIRABEGRON
  12. FUROSEMIDE. [Concomitant]
     Active Substance: FUROSEMIDE
  13. METFORMIN [Concomitant]
     Active Substance: METFORMIN HYDROCHLORIDE
  14. TOBRA/DEXAME [Concomitant]
  15. LETRAZOLE [Concomitant]
     Active Substance: LETROZOLE

REACTIONS (4)
  - Full blood count decreased [None]
  - Fluid retention [None]
  - Dyspnoea [None]
  - Gait disturbance [None]

NARRATIVE: CASE EVENT DATE: 20180314
